FAERS Safety Report 9227573 (Version 1)
Quarter: 2013Q2

REPORT INFORMATION
  Report Type: Spontaneous
  Country: US (occurrence: US)
  Receive Date: 20130412
  Receipt Date: 20130412
  Transmission Date: 20140414
  Serious: No
  Sender: FDA-Public Use
  Company Number: US-BAYER-2013-046212

PATIENT
  Sex: Male

DRUGS (3)
  1. CIPRO [Suspect]
     Indication: URINARY TRACT INFECTION
     Dosage: UNK
     Dates: start: 20130115
  2. CIPRO [Suspect]
     Indication: TESTICULAR PAIN
  3. CIPRO [Suspect]
     Indication: INFLAMMATION

REACTIONS (1)
  - Tinnitus [None]
